FAERS Safety Report 10227163 (Version 1)
Quarter: 2014Q2

REPORT INFORMATION
  Report Type: Spontaneous
  Country: US (occurrence: None)
  Receive Date: 20140609
  Receipt Date: 20140609
  Transmission Date: 20141212
  Serious: Yes (Hospitalization)
  Sender: FDA-Public Use
  Company Number: None

PATIENT
  Age: 59 Year
  Sex: Male
  Weight: 110.9 kg

DRUGS (1)
  1. CISPLATIN [Suspect]

REACTIONS (4)
  - Renal failure acute [None]
  - Deep vein thrombosis [None]
  - Syncope [None]
  - Dehydration [None]
